FAERS Safety Report 11847497 (Version 2)
Quarter: 2016Q1

REPORT INFORMATION
  Report Type: Spontaneous
  Country: US (occurrence: US)
  Receive Date: 20151217
  Receipt Date: 20160122
  Transmission Date: 20160526
  Serious: Yes (Death)
  Sender: FDA-Public Use
  Company Number: US-009507513-1512USA008539

PATIENT
  Age: 38 Year

DRUGS (1)
  1. KEYTRUDA [Suspect]
     Active Substance: PEMBROLIZUMAB
     Indication: ADENOCARCINOMA PANCREAS
     Dosage: 2 MG/KG, EVERY 3 WEEKS
     Dates: start: 20150930, end: 20151203

REACTIONS (2)
  - Product use issue [Unknown]
  - Death [Fatal]

NARRATIVE: CASE EVENT DATE: 20150930
